FAERS Safety Report 13729323 (Version 1)
Quarter: 2017Q3

REPORT INFORMATION
  Report Type: Spontaneous
  Country: US (occurrence: US)
  Receive Date: 20170707
  Receipt Date: 20170707
  Transmission Date: 20171127
  Serious: Yes (Other)
  Sender: FDA-Public Use
  Company Number: US-TELIGENT, INC-IGIL20170288

PATIENT
  Age: 64 Year
  Sex: Male

DRUGS (17)
  1. CEFTAZIDIME. [Suspect]
     Active Substance: CEFTAZIDIME
     Indication: BACTERAEMIA
     Dosage: 2 G
     Route: 042
  2. CEFTAZIDIME. [Suspect]
     Active Substance: CEFTAZIDIME
     Dosage: 19.2 G/D
     Route: 042
  3. FOSPHENYTOIN [Concomitant]
     Active Substance: FOSPHENYTOIN\FOSPHENYTOIN SODIUM
     Indication: STATUS EPILEPTICUS
     Dosage: 1200 MG
     Route: 065
  4. COLISTIN [Suspect]
     Active Substance: COLISTIN
     Dosage: 120 MG
     Route: 042
  5. MIDAZOLAM [Concomitant]
     Active Substance: MIDAZOLAM HYDROCHLORIDE
     Indication: MYOCLONUS
     Dosage: UNKNOWN
     Route: 065
  6. CEFTAZIDIME. [Suspect]
     Active Substance: CEFTAZIDIME
     Indication: PSEUDOMONAS INFECTION
     Dosage: UNKNOWN
     Route: 065
  7. SULFAMETHOXAZOLE-TRIMETHOPRIM [Concomitant]
     Active Substance: SULFAMETHOXAZOLE\TRIMETHOPRIM
     Indication: PROPHYLAXIS
     Dosage: UNKNOWN
     Route: 048
  8. LINEZOLID. [Concomitant]
     Active Substance: LINEZOLID
     Indication: INFECTION PROPHYLAXIS
  9. CEFTAZIDIME. [Suspect]
     Active Substance: CEFTAZIDIME
     Dosage: 16 G/D
     Route: 042
  10. RITUXIMAB. [Concomitant]
     Active Substance: RITUXIMAB
     Indication: CHRONIC LYMPHOCYTIC LEUKAEMIA
     Dosage: UNKNOWN
     Route: 065
  11. CEFPODOXIME [Concomitant]
     Active Substance: CEFPODOXIME
     Indication: PROPHYLAXIS
     Dosage: UNKNOWN
     Route: 048
  12. CEFTAZIDIME. [Suspect]
     Active Substance: CEFTAZIDIME
     Dosage: 8 G/D
     Route: 042
  13. COLISTIN [Suspect]
     Active Substance: COLISTIN
     Dosage: 200 MG
     Route: 042
  14. COLISTIN [Suspect]
     Active Substance: COLISTIN
     Dosage: 200 MG
     Route: 042
  15. ALEMTUZUMAB [Concomitant]
     Active Substance: ALEMTUZUMAB
     Indication: CHRONIC LYMPHOCYTIC LEUKAEMIA
     Dosage: UNKNOWN
     Route: 065
  16. PHENYTOIN. [Concomitant]
     Active Substance: PHENYTOIN
     Indication: STATUS EPILEPTICUS
     Dosage: 100 MG
     Route: 042
  17. COLISTIN [Suspect]
     Active Substance: COLISTIN
     Indication: FEBRILE NEUTROPENIA
     Dosage: 300 MG
     Route: 042

REACTIONS (8)
  - Agitation [Recovering/Resolving]
  - Lethargy [Recovering/Resolving]
  - Subarachnoid haemorrhage [Unknown]
  - Myoclonus [Recovering/Resolving]
  - Dyskinesia [Recovering/Resolving]
  - Status epilepticus [Recovering/Resolving]
  - Muscle twitching [Recovering/Resolving]
  - Neurotoxicity [Recovering/Resolving]
